FAERS Safety Report 9331217 (Version 3)
Quarter: 2013Q4

REPORT INFORMATION
  Report Type: Spontaneous
  Country: US (occurrence: US)
  Receive Date: 20130605
  Receipt Date: 20131122
  Transmission Date: 20140711
  Serious: Yes (Hospitalization)
  Sender: FDA-Public Use
  Company Number: US-B.I. PHARMACEUTICALS,INC./RIDGEFIELD-2013-BI-15750BP

PATIENT
  Age: 72 Year
  Sex: Female
  Weight: 65.77 kg

DRUGS (9)
  1. PRADAXA [Suspect]
     Dates: start: 20110429, end: 20110623
  2. CARVEDILOL [Concomitant]
     Dates: start: 201006
  3. DIGOXIN [Concomitant]
     Dates: start: 201005
  4. FUROSEMIDE [Concomitant]
     Dates: start: 201006
  5. LISINOPRIL [Concomitant]
     Dates: start: 201011
  6. SPIRONOLACTONE [Concomitant]
     Dates: start: 201005
  7. ASPIRIN [Concomitant]
  8. METFORMIN [Concomitant]
  9. GLYBURIDE [Concomitant]

REACTIONS (2)
  - Gastrointestinal haemorrhage [Unknown]
  - Anaemia [Unknown]
